FAERS Safety Report 8774936 (Version 1)
Quarter: 2012Q4

REPORT INFORMATION
  Report Type: 
  Country: CO (occurrence: CO)
  Receive Date: 20120910
  Receipt Date: 20120910
  Transmission Date: 20130627
  Serious: Yes (Other)
  Sender: FDA-Public Use
  Company Number: CO-JNJFOC-20120901601

PATIENT
  Age: 30 Year
  Sex: Female

DRUGS (4)
  1. REMICADE [Suspect]
     Indication: ANKYLOSING SPONDYLITIS
     Route: 042
     Dates: start: 20120828
  2. REMICADE [Suspect]
     Indication: ANKYLOSING SPONDYLITIS
     Route: 042
  3. NIMESULIDE [Concomitant]
     Route: 065
  4. LYRICA [Concomitant]
     Route: 065

REACTIONS (3)
  - Dyspnoea [Unknown]
  - Loss of consciousness [Unknown]
  - Infusion related reaction [Unknown]
